FAERS Safety Report 21774742 (Version 1)
Quarter: 2022Q4

REPORT INFORMATION
  Report Type: Spontaneous
  Country: US (occurrence: US)
  Receive Date: 20221224
  Receipt Date: 20221224
  Transmission Date: 20230112
  Serious: Yes (Other)
  Sender: FDA-Public Use
  Company Number: US-AUROBINDO-AUR-APL-2022-055267

PATIENT
  Age: 65 Year
  Sex: Male

DRUGS (1)
  1. PROBENECID [Suspect]
     Active Substance: PROBENECID
     Indication: Gout
     Dosage: 1 GRAM, TWO TIMES A DAY FOR 15 YEARS
     Route: 065

REACTIONS (4)
  - IgA nephropathy [Recovering/Resolving]
  - Renal tubular atrophy [Recovering/Resolving]
  - Renal arteriosclerosis [Recovering/Resolving]
  - Mesangioproliferative glomerulonephritis [Recovering/Resolving]
